FAERS Safety Report 23102211 (Version 2)
Quarter: 2024Q1

REPORT INFORMATION
  Report Type: Report from Study
  Country: CN (occurrence: CN)
  Receive Date: 20231025
  Receipt Date: 20240103
  Transmission Date: 20240410
  Serious: No
  Sender: FDA-Public Use
  Company Number: CN-009507513-2310CHN009122

PATIENT
  Age: 35 Year
  Sex: Male
  Weight: 102 kg

DRUGS (4)
  1. ERTUGLIFLOZIN [Suspect]
     Active Substance: ERTUGLIFLOZIN
     Indication: Diabetes mellitus
     Route: 048
     Dates: start: 20230204
  2. MIGLITOL [Concomitant]
     Active Substance: MIGLITOL
     Indication: Diabetes mellitus
     Route: 048
     Dates: start: 20220709
  3. BEINAGLUTIDE [Concomitant]
     Active Substance: BEINAGLUTIDE
     Indication: Diabetes mellitus
     Dosage: UNK
     Dates: start: 20230204, end: 20230504
  4. METFORMIN HYDROCHLORIDE;PIOGLITAZONE HYDROCHLORIDE [Concomitant]
     Indication: Diabetes mellitus
     Dosage: UNK
     Dates: start: 20230204, end: 20230628

REACTIONS (2)
  - Ketosis [Recovered/Resolved]
  - Peripheral vascular disorder [Unknown]

NARRATIVE: CASE EVENT DATE: 20230504
